FAERS Safety Report 6520813-X (Version None)
Quarter: 2009Q4

REPORT INFORMATION
  Report Type: 
  Country: None (occurrence: None)
  Receive Date: 20091229
  Receipt Date: 20091221
  Transmission Date: 20100525
  Serious: Yes (Other)
  Sender: FDA-Public Use
  Company Number: GB-AMGEN-UK381784

PATIENT

DRUGS (6)
  1. NEULASTA [Suspect]
     Indication: CHEMOTHERAPY
  2. EPIRUBICIN [Concomitant]
  3. CAPECITABINE [Concomitant]
  4. CYCLOPHOSPHAMIDE [Concomitant]
  5. METHOTREXATE [Concomitant]
  6. FLUORO-URACIL [Concomitant]

REACTIONS (2)
  - FEBRILE NEUTROPENIA [None]
  - NEUTROPENIA [None]
